FAERS Safety Report 23758370 (Version 1)
Quarter: 2024Q2

REPORT INFORMATION
  Report Type: Spontaneous
  Country: GB (occurrence: GB)
  Receive Date: 20240418
  Receipt Date: 20240418
  Transmission Date: 20240715
  Serious: Yes (Life-Threatening, Disabling, Other)
  Sender: FDA-Public Use
  Company Number: None

PATIENT
  Age: 24 Year
  Sex: Female

DRUGS (2)
  1. BETAMETHASONE [Suspect]
     Active Substance: BETAMETHASONE\BETAMETHASONE DIPROPIONATE
     Indication: Dermatitis atopic
     Dosage: DURATION: 3321 DAYS
     Route: 065
     Dates: start: 20130611, end: 20220715
  2. HYDROCORTISONE [Suspect]
     Active Substance: HYDROCORTISONE
     Indication: Adverse drug reaction
     Dosage: DURATION: 3561 DAYS
     Route: 065
     Dates: start: 20051005, end: 20150706

REACTIONS (8)
  - Ovarian cyst [Not Recovered/Not Resolved]
  - Medication error [Unknown]
  - Suicidal ideation [Recovered/Resolved with Sequelae]
  - Skin weeping [Not Recovered/Not Resolved]
  - Skin burning sensation [Not Recovered/Not Resolved]
  - Skin exfoliation [Not Recovered/Not Resolved]
  - Pyrexia [Not Recovered/Not Resolved]
  - Depression [Not Recovered/Not Resolved]

NARRATIVE: CASE EVENT DATE: 20210401
